FAERS Safety Report 6206440-2 (Version None)
Quarter: 2009Q2

REPORT INFORMATION
  Report Type: 
  Country: None (occurrence: None)
  Receive Date: 20090528
  Receipt Date: 20090521
  Transmission Date: 20091009
  Serious: Yes (Other)
  Sender: FDA-Public Use
  Company Number: US-JNJFOC-20090505797

PATIENT
  Sex: Female
  Weight: 63.5 kg

DRUGS (3)
  1. DURAGESIC-100 [Suspect]
     Indication: BACK PAIN
     Route: 062
  2. PHENERGAN [Concomitant]
     Indication: GASTRIC DISORDER
     Route: 065
  3. UNKNOWN MEDICATION [Concomitant]
     Route: 065

REACTIONS (7)
  - ARTHROPATHY [None]
  - CONVULSION [None]
  - DIARRHOEA [None]
  - MUSCLE STRAIN [None]
  - SLUGGISHNESS [None]
  - UTERINE LEIOMYOMA [None]
  - WRONG TECHNIQUE IN DRUG USAGE PROCESS [None]
